FAERS Safety Report 24305422 (Version 2)
Quarter: 2024Q4

REPORT INFORMATION
  Report Type: Spontaneous
  Country: US (occurrence: US)
  Receive Date: 20240911
  Receipt Date: 20241120
  Transmission Date: 20250115
  Serious: Yes (Hospitalization)
  Sender: RECORDATI
  Company Number: US-RECORDATI RARE DISEASES-2024006313

PATIENT

DRUGS (4)
  1. PANHEMATIN [Suspect]
     Active Substance: HEMIN
     Indication: Porphyria acute
     Dosage: UNK (CHANGED TO AS NEEDED (PRN))
  2. PANHEMATIN [Suspect]
     Active Substance: HEMIN
     Indication: Prophylaxis
  3. PANHEMATIN [Suspect]
     Active Substance: HEMIN
     Indication: Off label use
  4. GIVLAARI [Suspect]
     Active Substance: GIVOSIRAN SODIUM
     Indication: Product used for unknown indication
     Dosage: UNK

REACTIONS (8)
  - Kidney infection [Recovering/Resolving]
  - Endometriosis [Recovering/Resolving]
  - Procedural complication [Recovering/Resolving]
  - Metabolic disorder [Unknown]
  - Stress [Unknown]
  - Pelvic haemorrhage [Unknown]
  - Off label use [Recovered/Resolved]
  - Disease recurrence [Recovered/Resolved]

NARRATIVE: CASE EVENT DATE: 20240101
